FAERS Safety Report 25621137 (Version 1)
Quarter: 2025Q3

REPORT INFORMATION
  Report Type: Spontaneous
  Country: EU (occurrence: EU)
  Receive Date: 20250730
  Receipt Date: 20250730
  Transmission Date: 20251020
  Serious: Yes (Hospitalization)
  Sender: ROCHE
  Company Number: None

PATIENT
  Age: 83 Year
  Sex: Male

DRUGS (12)
  1. ATEZOLIZUMAB [Suspect]
     Active Substance: ATEZOLIZUMAB
     Indication: Lung adenocarcinoma
     Route: 065
     Dates: start: 20240719, end: 20250530
  2. INSULIN NOS [Concomitant]
     Active Substance: INSULIN NOS
  3. ASPIRIN [Concomitant]
     Active Substance: ASPIRIN
  4. LASIX [Concomitant]
     Active Substance: FUROSEMIDE
  5. PREVEX [Concomitant]
  6. OLMESARTAN MEDOXOMIL [Concomitant]
     Active Substance: OLMESARTAN MEDOXOMIL
  7. ATORVASTATIN [Concomitant]
     Active Substance: ATORVASTATIN
  8. POLITRATE [Concomitant]
  9. EBASTINE [Concomitant]
     Active Substance: EBASTINE
  10. TACHIPIRINA [Concomitant]
     Active Substance: ACETAMINOPHEN
  11. TOBRADEX [Concomitant]
     Active Substance: DEXAMETHASONE\TOBRAMYCIN
  12. LEVOTHYROXINE SODIUM [Concomitant]
     Active Substance: LEVOTHYROXINE SODIUM

REACTIONS (6)
  - Adrenal insufficiency [Recovering/Resolving]
  - Primary hypothyroidism [Recovering/Resolving]
  - Transient ischaemic attack [Recovering/Resolving]
  - Nausea [Recovering/Resolving]
  - Vomiting [Recovering/Resolving]
  - Decreased appetite [Recovering/Resolving]

NARRATIVE: CASE EVENT DATE: 20250620
